FAERS Safety Report 7079518-1 (Version None)
Quarter: 2010Q4

REPORT INFORMATION
  Report Type: 
  Country: None (occurrence: None)
  Receive Date: 20101022
  Receipt Date: 20101020
  Transmission Date: 20110411
  Serious: Yes (Life-Threatening)
  Sender: FDA-Public Use
  Company Number: 2010TJ0149FU1

PATIENT
  Age: 34 Year
  Sex: Female

DRUGS (1)
  1. TWINJECT (EPINEPHRINE) INJECTION [Suspect]
     Indication: HYPERSENSITIVITY
     Dosage: 0.3
     Dates: start: 20100904, end: 20100904

REACTIONS (2)
  - PRODUCT QUALITY ISSUE [None]
  - SYRINGE ISSUE [None]
